FAERS Safety Report 12085776 (Version 3)
Quarter: 2018Q2

REPORT INFORMATION
  Report Type: Spontaneous
  Country: JP (occurrence: JP)
  Receive Date: 20160217
  Receipt Date: 20180619
  Transmission Date: 20180711
  Serious: Yes (Other)
  Sender: FDA-Public Use
  Company Number: JP-SA-2016SA028314

PATIENT
  Age: 72 Year
  Sex: Male
  Weight: 52 kg

DRUGS (11)
  1. ELPLAT [Suspect]
     Active Substance: OXALIPLATIN
     Indication: COLON CANCER
     Dosage: UNK, QD
     Route: 041
     Dates: start: 2013, end: 2013
  2. IOHEXOL [Concomitant]
     Active Substance: IOHEXOL
     Dosage: UNK
  3. UROGRAFIN [Concomitant]
     Active Substance: DIATRIZOATE MEGLUMINE\DIATRIZOATE SODIUM
     Dosage: UNK
  4. PROPRANOLOL HYDROCHLORIDE. [Concomitant]
     Active Substance: PROPRANOLOL HYDROCHLORIDE
     Dosage: UNK
  5. CAMPTO [Suspect]
     Active Substance: IRINOTECAN
     Indication: COLON CANCER
     Dosage: UNK, QD
     Route: 041
     Dates: start: 201401
  6. SIMVASTATIN. [Concomitant]
     Active Substance: SIMVASTATIN
     Dosage: UNK
     Dates: start: 2013, end: 2013
  7. POLIDOCANOL [Concomitant]
     Active Substance: POLIDOCANOL
     Dosage: UNK
  8. CALCIUM LEVOFOLINATE [Suspect]
     Active Substance: LEVOLEUCOVORIN CALCIUM
     Indication: COLON CANCER
     Dosage: UNK, QD
     Route: 041
     Dates: start: 2013, end: 2013
  9. CALCIUM LEVOFOLINATE [Suspect]
     Active Substance: LEVOLEUCOVORIN CALCIUM
     Dosage: UNK UNK,QD
     Route: 041
  10. CALCIUM LEVOFOLINATE [Suspect]
     Active Substance: LEVOLEUCOVORIN CALCIUM
     Dosage: UNK UNK,QD
     Route: 041
     Dates: start: 201401
  11. FLUOROURACIL. [Concomitant]
     Active Substance: FLUOROURACIL
     Dosage: UNK
     Dates: start: 2013, end: 2013

REACTIONS (2)
  - Portal hypertension [Recovering/Resolving]
  - Bleeding varicose vein [Recovered/Resolved]
